FAERS Safety Report 5718494-8 (Version None)
Quarter: 2008Q2

REPORT INFORMATION
  Report Type: 
  Country: None (occurrence: None)
  Receive Date: 20080425
  Receipt Date: 20080415
  Transmission Date: 20081010
  Serious: Yes (Other)
  Sender: FDA-Public Use
  Company Number: US-TYCO HEALTHCARE/MALLINCKRODT-T200800701

PATIENT

DRUGS (1)
  1. MD-GASTROVIEW [Suspect]
     Indication: VENOGRAM
     Dosage: 50 ML (CC), UNK
     Route: 042
     Dates: start: 20080414, end: 20080414

REACTIONS (3)
  - HYPERSENSITIVITY [None]
  - MEDICATION ERROR [None]
  - THROAT TIGHTNESS [None]
